FAERS Safety Report 7817973-7 (Version None)
Quarter: 2011Q4

REPORT INFORMATION
  Report Type: 
  Country: None (occurrence: None)
  Receive Date: 20111017
  Receipt Date: 20111010
  Transmission Date: 20120403
  Serious: Yes (Death, Congenital Anomaly)
  Sender: FDA-Public Use
  Company Number: DK-GLAXOSMITHKLINE-B0754989A

PATIENT
  Sex: Male

DRUGS (2)
  1. KEPPRA [Suspect]
     Indication: EPILEPSY
     Route: 064
  2. LAMICTAL [Suspect]
     Indication: EPILEPSY
     Route: 064

REACTIONS (6)
  - MATERNAL EXPOSURE DURING PREGNANCY [None]
  - POTTER'S SYNDROME [None]
  - CAUDAL REGRESSION SYNDROME [None]
  - RENAL APLASIA [None]
  - CONGENITAL GENITAL MALFORMATION [None]
  - OLIGOHYDRAMNIOS [None]
